FAERS Safety Report 10407919 (Version 3)
Quarter: 2014Q3

REPORT INFORMATION
  Report Type: Spontaneous
  Country: US (occurrence: US)
  Receive Date: 20140825
  Receipt Date: 20140826
  Transmission Date: 20150326
  Serious: No
  Sender: FDA-Public Use
  Company Number: US-ASTRAZENECA-2012SE53386

PATIENT
  Age: 81 Year
  Sex: Female

DRUGS (3)
  1. SYMBICORT [Suspect]
     Active Substance: BUDESONIDE\FORMOTEROL FUMARATE DIHYDRATE
     Dosage: 80/4.5, 2 PUFFS BID
     Route: 055
     Dates: start: 20140126
  2. ALBUTEROL. [Concomitant]
     Active Substance: ALBUTEROL
  3. SYMBICORT [Suspect]
     Active Substance: BUDESONIDE\FORMOTEROL FUMARATE DIHYDRATE
     Dosage: 160/4.5, UNKNOWN
     Route: 055

REACTIONS (6)
  - Device misuse [Unknown]
  - Drug dose omission [None]
  - Oropharyngeal pain [Unknown]
  - Circumstance or information capable of leading to medication error [Unknown]
  - Fatigue [Unknown]
  - Drug intolerance [Unknown]
